FAERS Safety Report 19902028 (Version 4)
Quarter: 2022Q2

REPORT INFORMATION
  Report Type: Spontaneous
  Country: US (occurrence: US)
  Receive Date: 20210930
  Receipt Date: 20220411
  Transmission Date: 20220721
  Serious: No
  Sender: FDA-Public Use
  Company Number: US-PFIZER INC-202101139593

PATIENT
  Age: 52 Year
  Sex: Female

DRUGS (7)
  1. IBRANCE [Suspect]
     Active Substance: PALBOCICLIB
     Indication: Breast cancer female
     Dosage: 125 MG, CYCLIC (1 DAILY FOR 21 DAYS THEN 7 DAYS OFF)
     Route: 048
     Dates: start: 20210810
  2. PEPCID [Concomitant]
     Active Substance: FAMOTIDINE
     Dosage: 20 MG
  3. TUMS [Concomitant]
     Active Substance: CALCIUM CARBONATE
     Dosage: 200 MG (TUMS 200(500)MG TAB CHEW)
  4. ADVIL [Concomitant]
     Active Substance: IBUPROFEN
     Dosage: 200 MG
  5. XGEVA [Concomitant]
     Active Substance: DENOSUMAB
     Dosage: UNK (120 MG/1.7 VIAL,)
  6. CALCIUM CARBONATE\CHOLECALCIFEROL [Concomitant]
     Active Substance: CALCIUM CARBONATE\CHOLECALCIFEROL
     Dosage: UNK (600MG-12.5 TABLET ER)
  7. LETROZOLE [Concomitant]
     Active Substance: LETROZOLE
     Dosage: 2.5 MG

REACTIONS (5)
  - Oropharyngeal pain [Unknown]
  - Stomatitis [Unknown]
  - Dyspepsia [Unknown]
  - Nausea [Unknown]
  - Headache [Unknown]
